FAERS Safety Report 5866084-9 (Version None)
Quarter: 2008Q3

REPORT INFORMATION
  Report Type: 
  Country: None (occurrence: None)
  Receive Date: 20080829
  Receipt Date: 20080821
  Transmission Date: 20090109
  Serious: Yes (Other)
  Sender: FDA-Public Use
  Company Number: DE-AMGEN-UK301113

PATIENT
  Sex: Female
  Weight: 79 kg

DRUGS (3)
  1. VECTIBIX [Suspect]
     Indication: COLORECTAL CANCER
     Route: 042
     Dates: start: 20080514
  2. VECTIBIX [Suspect]
     Route: 042
     Dates: start: 20080806, end: 20080806
  3. VECTIBIX [Suspect]
     Route: 042
     Dates: start: 20080820, end: 20080820

REACTIONS (3)
  - CHILLS [None]
  - ERYTHEMA [None]
  - HYPERSENSITIVITY [None]
